FAERS Safety Report 7506825-8 (Version None)
Quarter: 2011Q2

REPORT INFORMATION
  Report Type: 
  Country: None (occurrence: None)
  Receive Date: 20110526
  Receipt Date: 20110518
  Transmission Date: 20111010
  Serious: Yes (Death, Life-Threatening, Hospitalization)
  Sender: FDA-Public Use
  Company Number: A0929168A

PATIENT
  Age: 71 Year
  Sex: Male
  Weight: 100 kg

DRUGS (1)
  1. ARIXTRA [Suspect]
     Indication: DEEP VEIN THROMBOSIS
     Dosage: 10MG TWICE PER DAY
     Route: 058
     Dates: start: 20110123, end: 20110123

REACTIONS (20)
  - DEATH [None]
  - MUSCULAR WEAKNESS [None]
  - TROPONIN [None]
  - ENCEPHALOPATHY [None]
  - PARAPLEGIA [None]
  - SPUTUM INCREASED [None]
  - PNEUMONIA [None]
  - SUBDURAL HAEMORRHAGE [None]
  - SPINAL EPIDURAL HAEMORRHAGE [None]
  - SPINAL CORD OEDEMA [None]
  - HAEMORRHAGIC STROKE [None]
  - CONFUSIONAL STATE [None]
  - EXTUBATION [None]
  - HAEMORRHAGE [None]
  - INCORRECT DRUG ADMINISTRATION DURATION [None]
  - PULMONARY CONGESTION [None]
  - HYPOTENSION [None]
  - GENERAL PHYSICAL HEALTH DETERIORATION [None]
  - HAEMODYNAMIC INSTABILITY [None]
  - RED BLOOD CELLS CSF POSITIVE [None]
